FAERS Safety Report 5699107-0 (Version None)
Quarter: 2008Q2

REPORT INFORMATION
  Report Type: 
  Country: None (occurrence: None)
  Receive Date: 20080407
  Receipt Date: 20080407
  Transmission Date: 20081010
  Serious: Yes (Other)
  Sender: FDA-Public Use
  Company Number: None

PATIENT
  Sex: Female
  Weight: 113.3993 kg

DRUGS (1)
  1. CYMBALTA [Suspect]
     Dosage: 60MG Q24HRS PO
     Route: 048

REACTIONS (2)
  - ANGIOEDEMA [None]
  - POSTPARTUM DEPRESSION [None]
